FAERS Safety Report 6213505-8 (Version None)
Quarter: 2009Q2

REPORT INFORMATION
  Report Type: 
  Country: None (occurrence: None)
  Receive Date: 20090603
  Receipt Date: 20090521
  Transmission Date: 20091009
  Serious: Yes (Other)
  Sender: FDA-Public Use
  Company Number: CN-PFIZER INC-2009213228

PATIENT

DRUGS (3)
  1. GLIPIZIDE [Suspect]
     Indication: TYPE 2 DIABETES MELLITUS
     Dosage: UNK
     Route: 048
     Dates: start: 20090101, end: 20090101
  2. ACARBOSE [Suspect]
     Indication: TYPE 2 DIABETES MELLITUS
     Dosage: UNK
     Route: 048
     Dates: start: 20090101, end: 20090101
  3. ACARBOSE [Suspect]
     Route: 048
     Dates: start: 20090101, end: 20090101

REACTIONS (1)
  - TRANSAMINASES INCREASED [None]
